FAERS Safety Report 17251092 (Version 2)
Quarter: 2020Q1

REPORT INFORMATION
  Report Type: Spontaneous
  Country: FR (occurrence: FR)
  Receive Date: 20200109
  Receipt Date: 20200317
  Transmission Date: 20200409
  Serious: Yes (Hospitalization)
  Sender: FDA-Public Use
  Company Number: FR-ACCORD-168915

PATIENT
  Age: 58 Year
  Sex: Male
  Weight: 62 kg

DRUGS (2)
  1. ISTODAX [Suspect]
     Active Substance: ROMIDEPSIN
     Indication: NON-HODGKIN^S LYMPHOMA
     Dosage: 25 MG D1 AND D8 / CYCLE, STRENGTH: 10 MG
     Route: 042
     Dates: start: 20191128, end: 20191128
  2. BENDAMUSTINE ACCORD [Suspect]
     Active Substance: BENDAMUSTINE
     Indication: NON-HODGKIN^S LYMPHOMA
     Dosage: 160 MG D1 AND D2 / CYCLE
     Route: 042
     Dates: start: 20191128, end: 20191128

REACTIONS (5)
  - Pancytopenia [Recovered/Resolved]
  - Hepatocellular injury [Recovered/Resolved with Sequelae]
  - Condition aggravated [Recovered/Resolved with Sequelae]
  - Pyrexia [Recovered/Resolved]
  - Acute kidney injury [Recovered/Resolved]

NARRATIVE: CASE EVENT DATE: 201911
